FAERS Safety Report 12774581 (Version 1)
Quarter: 2016Q3

REPORT INFORMATION
  Report Type: Spontaneous
  Country: AT (occurrence: AT)
  Receive Date: 20160923
  Receipt Date: 20160923
  Transmission Date: 20161109
  Serious: Yes (Other)
  Sender: FDA-Public Use
  Company Number: AT-009507513-1609AUT009235

PATIENT

DRUGS (1)
  1. ZERBAXA [Suspect]
     Active Substance: CEFTOLOZANE SULFATE\TAZOBACTAM SODIUM
     Indication: RESPIRATORY TRACT INFECTION BACTERIAL
     Dosage: 1 G/0.5 G, UNK

REACTIONS (4)
  - Off label use [Unknown]
  - Underdose [Unknown]
  - Drug ineffective for unapproved indication [Unknown]
  - Pathogen resistance [Unknown]
